FAERS Safety Report 7368671-8 (Version None)
Quarter: 2011Q1

REPORT INFORMATION
  Report Type: 
  Country: None (occurrence: None)
  Receive Date: 20110304
  Receipt Date: 20101029
  Transmission Date: 20110831
  Serious: Yes (Death, Life-Threatening, Hospitalization)
  Sender: FDA-Public Use
  Company Number: CLOF-10466

PATIENT
  Age: 68 Year
  Sex: Male

DRUGS (14)
  1. FAMOTIDINE [Concomitant]
  2. MEGESTROL ACETATE [Concomitant]
  3. SPIRONOLACTONE [Concomitant]
  4. CYTARABINE [Suspect]
     Indication: ACUTE MYELOID LEUKAEMIA
     Dosage: 2020 MG, QDX5, INTRAVENOUS
     Route: 042
     Dates: start: 20070301, end: 20070304
  5. AMBISOME [Concomitant]
  6. POTASSIUM CHLORIDE [Concomitant]
  7. ACYCLOVIR [Concomitant]
  8. VORICONAZOLE [Concomitant]
  9. CLOFARABINE [Suspect]
     Indication: ACUTE MYELOID LEUKAEMIA
     Dosage: 61 MG, QDX5, INTRAVENOUS
     Route: 042
     Dates: start: 20070301, end: 20070304
  10. CITALOPRAM (CITALOPRAM) [Concomitant]
  11. LEVOFLOXACIN (LEVAQUIN) [Concomitant]
  12. PROTONIX [Concomitant]
  13. METOCLOPRAMIDE [Concomitant]
  14. LISINOPRIL [Concomitant]

REACTIONS (19)
  - HYPERURICAEMIA [None]
  - ASCITES [None]
  - HYPOTENSION [None]
  - HYPERBILIRUBINAEMIA [None]
  - SEPTIC SHOCK [None]
  - GENERALISED OEDEMA [None]
  - RENAL FAILURE ACUTE [None]
  - HAEMODIALYSIS [None]
  - RESPIRATORY FAILURE [None]
  - COAGULOPATHY [None]
  - WEIGHT INCREASED [None]
  - VENOOCCLUSIVE LIVER DISEASE [None]
  - TUMOUR LYSIS SYNDROME [None]
  - BACTERAEMIA [None]
  - STAPHYLOCOCCAL INFECTION [None]
  - CONFUSIONAL STATE [None]
  - RENAL TUBULAR NECROSIS [None]
  - WHITE BLOOD CELL COUNT DECREASED [None]
  - MUCOSAL INFLAMMATION [None]
